FAERS Safety Report 24895306 (Version 1)
Quarter: 2025Q1

REPORT INFORMATION
  Report Type: Spontaneous
  Country: US (occurrence: US)
  Receive Date: 20250128
  Receipt Date: 20250128
  Transmission Date: 20250409
  Serious: No
  Sender: MYLAN
  Company Number: US-MYLANLABS-2025M1005061

PATIENT
  Age: 59 Year
  Sex: Female

DRUGS (1)
  1. WIXELA INHUB [Suspect]
     Active Substance: FLUTICASONE PROPIONATE\SALMETEROL XINAFOATE
     Indication: Product used for unknown indication
     Route: 065
     Dates: start: 20250117

REACTIONS (3)
  - Device difficult to use [Unknown]
  - Device malfunction [Unknown]
  - Product quality issue [Unknown]

NARRATIVE: CASE EVENT DATE: 20250117
